FAERS Safety Report 4370502-5 (Version None)
Quarter: 2004Q2

REPORT INFORMATION
  Report Type: 
  Country: None (occurrence: None)
  Receive Date: 20040601
  Receipt Date: 20031110
  Transmission Date: 20050107
  Serious: Yes (Other)
  Sender: FDA-Public Use
  Company Number: US048161

PATIENT
  Age: 53 Year
  Sex: Female

DRUGS (8)
  1. ENBREL [Suspect]
     Indication: RHEUMATOID ARTHRITIS
     Dosage: 25 MG TWICE WEEKLY SC
     Route: 058
     Dates: start: 20021119, end: 20030408
  2. ALENDRONATE SODIUM [Concomitant]
  3. FLUOXETINE HYDROCHLORIDE [Concomitant]
  4. BUPROPION HCL [Concomitant]
  5. LANSOPRAZOLE [Concomitant]
  6. HYDROXYCHLOROQUINE SULFATE [Concomitant]
  7. SULFASALAZINE [Concomitant]
  8. ETODOLAC [Concomitant]

REACTIONS (1)
  - NON-HODGKIN'S LYMPHOMA RECURRENT [None]
